FAERS Safety Report 7106163-1 (Version None)
Quarter: 2010Q4

REPORT INFORMATION
  Report Type: 
  Country: None (occurrence: None)
  Receive Date: 20101116
  Receipt Date: 20101109
  Transmission Date: 20110411
  Serious: Yes (Hospitalization)
  Sender: FDA-Public Use
  Company Number: DE-JNJCH-2010021552

PATIENT
  Sex: Female

DRUGS (2)
  1. REGAINE 2% [Suspect]
     Indication: ALOPECIA EFFLUVIUM
     Dosage: TEXT:1-2 ML DAILY
     Route: 061
     Dates: start: 20100601, end: 20100901
  2. METFORMIN [Concomitant]
     Indication: PRODUCT USED FOR UNKNOWN INDICATION
     Dosage: TEXT:UNKNOWN
     Route: 065

REACTIONS (9)
  - ABNORMAL SENSATION IN EYE [None]
  - APPLICATION SITE BURN [None]
  - APPLICATION SITE VESICLES [None]
  - CHEMICAL INJURY [None]
  - DERMATITIS ALLERGIC [None]
  - ERYTHEMA [None]
  - HEADACHE [None]
  - PRURITUS [None]
  - TOXIC SKIN ERUPTION [None]
